FAERS Safety Report 21902158 (Version 2)
Quarter: 2023Q1

REPORT INFORMATION
  Report Type: Report from Study
  Country: US (occurrence: US)
  Receive Date: 20230124
  Receipt Date: 20230125
  Transmission Date: 20230418
  Serious: No
  Sender: FDA-Public Use
  Company Number: US-002147023-NVSC2023US011158

PATIENT
  Age: 47 Year
  Sex: Male
  Weight: 106.59 kg

DRUGS (1)
  1. COSENTYX [Suspect]
     Active Substance: SECUKINUMAB
     Indication: Product used for unknown indication
     Dosage: 180 MG, QMO
     Route: 030
     Dates: start: 2021, end: 20230101

REACTIONS (5)
  - Arthralgia [Unknown]
  - Joint swelling [Unknown]
  - Cyst [Unknown]
  - Incorrect dose administered [Unknown]
  - Incorrect route of product administration [Unknown]

NARRATIVE: CASE EVENT DATE: 20230101
